FAERS Safety Report 8084718-8 (Version None)
Quarter: 2012Q1

REPORT INFORMATION
  Report Type: 
  Country: None (occurrence: None)
  Receive Date: 20120128
  Receipt Date: 20110310
  Transmission Date: 20120608
  Serious: Yes (Hospitalization, Other)
  Sender: FDA-Public Use
  Company Number: US-ABBOTT-11P-163-0711043-00

PATIENT
  Sex: Female
  Weight: 83.99 kg

DRUGS (19)
  1. METHADONE HCL [Concomitant]
     Indication: PAIN
  2. SPIRONOLACTONE [Concomitant]
     Indication: SWELLING
  3. LYSINE [Concomitant]
     Indication: PRODUCT USED FOR UNKNOWN INDICATION
  4. ASCORBIC ACID [Concomitant]
     Indication: PRODUCT USED FOR UNKNOWN INDICATION
  5. TOPIRAMATE [Concomitant]
     Indication: MIGRAINE
  6. MAXALT [Concomitant]
     Indication: MIGRAINE
  7. FOLIC ACID [Concomitant]
     Indication: PRODUCT USED FOR UNKNOWN INDICATION
  8. CALCIUM [Concomitant]
     Indication: PRODUCT USED FOR UNKNOWN INDICATION
  9. ASPIRIN [Concomitant]
     Indication: PRODUCT USED FOR UNKNOWN INDICATION
  10. FUROSEMIDE [Concomitant]
     Indication: OEDEMA PERIPHERAL
  11. HUMIRA [Suspect]
     Dates: start: 20110307
  12. VITAMIN B-12 [Concomitant]
     Indication: PRODUCT USED FOR UNKNOWN INDICATION
  13. GABAPENTIN [Concomitant]
     Indication: NEUROPATHY PERIPHERAL
  14. MULTI-VITAMIN [Concomitant]
     Indication: PRODUCT USED FOR UNKNOWN INDICATION
  15. PRILOSEC [Concomitant]
     Indication: GASTROOESOPHAGEAL REFLUX DISEASE
  16. VITAMIN D [Concomitant]
     Indication: PRODUCT USED FOR UNKNOWN INDICATION
  17. LORAZEPAM [Concomitant]
     Indication: ANXIETY
  18. HUMIRA [Suspect]
     Indication: ARTHRITIS
     Dates: start: 20090101, end: 20101001
  19. LOVASTATIN [Concomitant]
     Indication: BLOOD CHOLESTEROL

REACTIONS (6)
  - OEDEMA PERIPHERAL [None]
  - RASH GENERALISED [None]
  - PAIN IN EXTREMITY [None]
  - WOUND DRAINAGE [None]
  - PNEUMONIA [None]
  - ERYTHEMA [None]
